FAERS Safety Report 9315666 (Version 2)
Quarter: 2013Q3

REPORT INFORMATION
  Report Type: Spontaneous
  Country: IT (occurrence: IT)
  Receive Date: 20130529
  Receipt Date: 20130709
  Transmission Date: 20140515
  Serious: Yes (Hospitalization)
  Sender: FDA-Public Use
  Company Number: IT-WATSON-2013-09101

PATIENT
  Age: 31 Year
  Sex: Male

DRUGS (3)
  1. RAPAFLO (WATSON LABORATORIES) [Suspect]
     Indication: URINARY TRACT INFECTION
     Dosage: 8MG, 1 DF ; QD
     Route: 048
     Dates: start: 20130510, end: 20130511
  2. RAPAFLO (WATSON LABORATORIES) [Suspect]
     Indication: OFF LABEL USE
  3. EUTIROX [Concomitant]
     Indication: PRODUCT USED FOR UNKNOWN INDICATION
     Dosage: 125 UG TABLET, UNK
     Route: 065

REACTIONS (3)
  - Vertigo [Recovering/Resolving]
  - Diarrhoea [Recovering/Resolving]
  - Nausea [Recovering/Resolving]
